FAERS Safety Report 5043875-8 (Version None)
Quarter: 2006Q2

REPORT INFORMATION
  Report Type: 
  Country: None (occurrence: None)
  Receive Date: 20060629
  Receipt Date: 20060616
  Transmission Date: 20061013
  Serious: Yes (Death)
  Sender: FDA-Public Use
  Company Number: 163-21880-06040307

PATIENT
  Age: 74 Year
  Sex: Male

DRUGS (23)
  1. REVLIMID [Suspect]
     Indication: MYELOFIBROSIS
     Dosage: 1 IN 1 D, ORAL; 2 IN 1 D, ORAL;  1 IN 1 D, ORAL
     Route: 048
     Dates: start: 20060308, end: 20060320
  2. REVLIMID [Suspect]
     Indication: MYELOID METAPLASIA
     Dosage: 1 IN 1 D, ORAL; 2 IN 1 D, ORAL;  1 IN 1 D, ORAL
     Route: 048
     Dates: start: 20060308, end: 20060320
  3. REVLIMID [Suspect]
     Indication: MYELOFIBROSIS
     Dosage: 1 IN 1 D, ORAL; 2 IN 1 D, ORAL;  1 IN 1 D, ORAL
     Route: 048
     Dates: start: 20060321, end: 20060403
  4. REVLIMID [Suspect]
     Indication: MYELOID METAPLASIA
     Dosage: 1 IN 1 D, ORAL; 2 IN 1 D, ORAL;  1 IN 1 D, ORAL
     Route: 048
     Dates: start: 20060321, end: 20060403
  5. REVLIMID [Suspect]
     Indication: MYELOFIBROSIS
     Dosage: 1 IN 1 D, ORAL; 2 IN 1 D, ORAL;  1 IN 1 D, ORAL
     Route: 048
     Dates: start: 20060404, end: 20060412
  6. REVLIMID [Suspect]
     Indication: MYELOID METAPLASIA
     Dosage: 1 IN 1 D, ORAL; 2 IN 1 D, ORAL;  1 IN 1 D, ORAL
     Route: 048
     Dates: start: 20060404, end: 20060412
  7. PREDNISONE (PREDNISONE) TABLETS [Concomitant]
  8. ADVAIR DISKUS 100/50 [Concomitant]
  9. COMBIVENT [Concomitant]
  10. IPRATROPIUM BROMIDE (IPRATROPIUM BROMIDE) (SOLUTION) [Concomitant]
  11. SOTALOL HCL [Concomitant]
  12. FOLIC ACID [Concomitant]
  13. OMEPRASONE [Concomitant]
  14. FLUOXETINE HCL [Concomitant]
  15. LORAZEPAM [Concomitant]
  16. EXJADE [Concomitant]
  17. MULTIVITAMIN WITHOUT IRON (TABLETS) [Concomitant]
  18. ASCORBIC ACID [Concomitant]
  19. CALCIUM (CALCIUM) [Concomitant]
  20. VITAMIN D [Concomitant]
  21. GLUCOSAMINE (GLUCOSAMINE) [Concomitant]
  22. CHONDROTIN SULFATE [Concomitant]
  23. CLARITIN [Concomitant]

REACTIONS (3)
  - DISEASE PROGRESSION [None]
  - NEUTROPENIA [None]
  - THROMBOCYTOPENIA [None]
